FAERS Safety Report 8822945 (Version 2)
Quarter: 2012Q4

REPORT INFORMATION
  Report Type: 
  Country: CA (occurrence: CA)
  Receive Date: 20121003
  Receipt Date: 20121022
  Transmission Date: 20130627
  Serious: Yes (Other)
  Sender: FDA-Public Use
  Company Number: PHHY2012CA075345

PATIENT
  Age: 51 Year
  Sex: Male

DRUGS (10)
  1. GILENYA [Suspect]
     Indication: RELAPSING-REMITTING MULTIPLE SCLEROSIS
     Dosage: 0.5 mg, QD
     Route: 048
     Dates: start: 20120322
  2. WELLBUTRIN XL [Concomitant]
     Dosage: 300 mg, once daily
  3. BACLOFEN [Concomitant]
     Dosage: 10 mg, Once daily
  4. LITHIUM [Concomitant]
     Dosage: 10 mg, once daily
  5. AMANTADINE [Concomitant]
     Dosage: 100 mg, BID
  6. LAMOTRIGINE [Concomitant]
     Dosage: 200 mg, Daily
  7. MICARDIS [Concomitant]
     Dosage: 80 mg, Daily
  8. AMITRIPTYLINE [Concomitant]
  9. MORPHINE [Concomitant]
     Dosage: 60 mg, BID
  10. RABEPRAZOLE [Concomitant]
     Dosage: 20 mg, once daily

REACTIONS (4)
  - Convulsion [Unknown]
  - Confusional state [Unknown]
  - Weight decreased [Not Recovered/Not Resolved]
  - Haemoglobin decreased [Unknown]
